FAERS Safety Report 17213459 (Version 1)
Quarter: 2020Q1

REPORT INFORMATION
  Report Type: Spontaneous
  Country: US (occurrence: US)
  Receive Date: 20191227
  Receipt Date: 20191227
  Transmission Date: 20200409
  Serious: Yes (Other)
  Sender: FDA-Public Use
  Company Number: None

PATIENT
  Age: 64 Year
  Sex: Female

DRUGS (6)
  1. OXYCODONE [Concomitant]
     Active Substance: OXYCODONE
  2. METHYLPHENID [Concomitant]
     Active Substance: METHYLPHENIDATE
  3. GLATIRAMER [Suspect]
     Active Substance: GLATIRAMER
     Indication: PRODUCT USED FOR UNKNOWN INDICATION
     Dosage: ?          OTHER FREQUENCY:3 TIMES PER WEEK;?
     Route: 058
     Dates: start: 20181220
  4. MELOXICAM. [Concomitant]
     Active Substance: MELOXICAM
  5. TRIAMCINOLON [Concomitant]
  6. CICLOPIROX. [Concomitant]
     Active Substance: CICLOPIROX

REACTIONS (2)
  - Therapy cessation [None]
  - Injection site reaction [None]
